FAERS Safety Report 11359599 (Version 1)
Quarter: 2015Q3

REPORT INFORMATION
  Report Type: Spontaneous
  Country: US (occurrence: None)
  Receive Date: 20150807
  Receipt Date: 20150807
  Transmission Date: 20151125
  Serious: Yes (Hospitalization)
  Sender: FDA-Public Use
  Company Number: None

PATIENT
  Age: 56 Year
  Sex: Male
  Weight: 72.1 kg

DRUGS (2)
  1. GEMCITABINE HYDROCHLORIDE. [Suspect]
     Active Substance: GEMCITABINE HYDROCHLORIDE
     Dates: end: 20150805
  2. CISPLATIN. [Suspect]
     Active Substance: CISPLATIN
     Dates: end: 20150805

REACTIONS (1)
  - Cholangitis [None]

NARRATIVE: CASE EVENT DATE: 20150801
